FAERS Safety Report 23139110 (Version 4)
Quarter: 2024Q4

REPORT INFORMATION
  Report Type: Spontaneous
  Country: US (occurrence: US)
  Receive Date: 20231102
  Receipt Date: 20241011
  Transmission Date: 20250115
  Serious: No
  Sender: VERTEX
  Company Number: US-VERTEX PHARMACEUTICALS-2023-016093

PATIENT
  Age: 42 Year
  Sex: Male

DRUGS (4)
  1. TRIKAFTA [Suspect]
     Active Substance: ELEXACAFTOR\IVACAFTOR\TEZACAFTOR
     Indication: Cystic fibrosis
     Dosage: UNK
     Route: 048
  2. CREON [Concomitant]
     Active Substance: PANCRELIPASE AMYLASE\PANCRELIPASE LIPASE\PANCRELIPASE PROTEASE
     Dosage: UNK
  3. CREON [Concomitant]
     Active Substance: PANCRELIPASE AMYLASE\PANCRELIPASE LIPASE\PANCRELIPASE PROTEASE
     Dosage: DOSE DECREASED
  4. INSULIN NOS [Concomitant]
     Active Substance: INSULIN NOS

REACTIONS (2)
  - Diabetes mellitus [Not Recovered/Not Resolved]
  - Pancreatic failure [Not Recovered/Not Resolved]
